FAERS Safety Report 13667470 (Version 2)
Quarter: 2017Q2

REPORT INFORMATION
  Report Type: Report from Study
  Country: None (occurrence: NZ)
  Receive Date: 20170620
  Receipt Date: 20170630
  Transmission Date: 20170830
  Serious: Yes (Other)
  Sender: FDA-Public Use
  Company Number: NZ-ABBVIE-17K-118-1991331-00

PATIENT
  Sex: Male

DRUGS (2)
  1. HUMIRA [Suspect]
     Active Substance: ADALIMUMAB
     Indication: PSORIASIS
     Route: 058
     Dates: start: 2016
  2. HUMIRA [Suspect]
     Active Substance: ADALIMUMAB
     Route: 058
     Dates: start: 20170222, end: 20170513

REACTIONS (16)
  - Musculoskeletal stiffness [Unknown]
  - Psoriasis [Not Recovered/Not Resolved]
  - Impaired healing [Unknown]
  - Liver disorder [Unknown]
  - Drug ineffective [Unknown]
  - Visual impairment [Recovering/Resolving]
  - Headache [Unknown]
  - Drug effect decreased [Not Recovered/Not Resolved]
  - Sleep disorder [Not Recovered/Not Resolved]
  - Adverse drug reaction [Unknown]
  - Arthralgia [Unknown]
  - Arthralgia [Recovering/Resolving]
  - Injury [Unknown]
  - Myalgia [Unknown]
  - Psoriatic arthropathy [Unknown]
  - Tendon pain [Unknown]

NARRATIVE: CASE EVENT DATE: 2016
